FAERS Safety Report 5088143-3 (Version None)
Quarter: 2006Q3

REPORT INFORMATION
  Report Type: 
  Country: None (occurrence: None)
  Receive Date: 20060823
  Receipt Date: 20060823
  Transmission Date: 20061208
  Serious: Yes (Hospitalization)
  Sender: FDA-Public Use
  Company Number: None

PATIENT
  Age: 62 Year
  Sex: Male
  Weight: 61.7 kg

DRUGS (7)
  1. VELCADE [Suspect]
     Indication: MULTIPLE MYELOMA
     Dosage: 1.3 MG /M2 DAYS 1, 4, 8 AND 11 IV
     Route: 042
     Dates: start: 20060814, end: 20060817
  2. DOXORUBICIN HCL [Suspect]
     Indication: MULTIPLE MYELOMA
     Dosage: 15 MG/M2 DAYS 1 AND 8 IV
     Route: 042
     Dates: start: 20060814, end: 20060814
  3. MORPHINE [Concomitant]
  4. RANITIDINE HCL [Concomitant]
  5. REGLAN [Concomitant]
  6. PRILOSEC [Concomitant]
  7. MIRALEX [Concomitant]

REACTIONS (2)
  - HERPES ZOSTER DISSEMINATED [None]
  - INFECTION [None]
